FAERS Safety Report 4348342-2 (Version None)
Quarter: 2004Q2

REPORT INFORMATION
  Report Type: 
  Country: None (occurrence: None)
  Receive Date: 20040427
  Receipt Date: 20040414
  Transmission Date: 20050107
  Serious: Yes (Hospitalization)
  Sender: FDA-Public Use
  Company Number: JP-GLAXOSMITHKLINE-B0329891A

PATIENT
  Age: 27 Year
  Sex: Male

DRUGS (4)
  1. AMOXICILLIN [Suspect]
     Route: 048
     Dates: start: 20031027, end: 20031031
  2. LOXONIN [Suspect]
     Indication: UPPER RESPIRATORY TRACT INFLAMMATION
     Route: 048
     Dates: start: 20031027, end: 20031031
  3. MEDICON [Suspect]
     Indication: UPPER RESPIRATORY TRACT INFLAMMATION
     Route: 048
     Dates: start: 20031027, end: 20031031
  4. PL [Suspect]
     Indication: UPPER RESPIRATORY TRACT INFLAMMATION
     Dosage: 1G THREE TIMES PER DAY
     Route: 048
     Dates: start: 20031027, end: 20031031

REACTIONS (9)
  - ABDOMINAL PAIN UPPER [None]
  - ALANINE AMINOTRANSFERASE INCREASED [None]
  - ASPARTATE AMINOTRANSFERASE INCREASED [None]
  - BLOOD ALKALINE PHOSPHATASE INCREASED [None]
  - CONDITION AGGRAVATED [None]
  - GAMMA-GLUTAMYLTRANSFERASE INCREASED [None]
  - HEPATITIS [None]
  - JAUNDICE [None]
  - PRURITUS [None]
